FAERS Safety Report 25449493 (Version 1)
Quarter: 2025Q2

REPORT INFORMATION
  Report Type: Spontaneous
  Country: US (occurrence: US)
  Receive Date: 20250618
  Receipt Date: 20250618
  Transmission Date: 20250716
  Serious: No
  Sender: TARO
  Company Number: US-TARO PHARMACEUTICALS USA INC.-2024TAR02454

PATIENT
  Sex: Male
  Weight: 10.884 kg

DRUGS (1)
  1. FEVERALL [Suspect]
     Active Substance: ACETAMINOPHEN
     Indication: Pyrexia
     Dosage: OD, 1 SUPPOSITORY
     Route: 054
     Dates: start: 20241118, end: 20241118

REACTIONS (1)
  - Urticaria [Recovering/Resolving]
